FAERS Safety Report 8453769-3 (Version None)
Quarter: 2012Q2

REPORT INFORMATION
  Report Type: 
  Country: None (occurrence: None)
  Receive Date: 20120620
  Receipt Date: 20120618
  Transmission Date: 20120825
  Serious: No
  Sender: FDA-Public Use
  Company Number: US-PFIZER INC-2012147048

PATIENT
  Sex: Male
  Weight: 87 kg

DRUGS (4)
  1. FLONASE [Concomitant]
     Dosage: 50 UG, UNK
  2. MOTRIN [Concomitant]
     Dosage: 600 MG, UNK
  3. CHANTIX [Suspect]
     Indication: SMOKING CESSATION THERAPY
     Dosage: 0.5 MG, 1X/DAY
     Route: 048
     Dates: start: 20120601, end: 20120601
  4. CHANTIX [Suspect]
     Dosage: 0.5 MG, UNK
     Route: 048
     Dates: start: 20120601, end: 20120618

REACTIONS (1)
  - VISION BLURRED [None]
